FAERS Safety Report 18524545 (Version 3)
Quarter: 2020Q4

REPORT INFORMATION
  Report Type: Spontaneous
  Country: FR (occurrence: FR)
  Receive Date: 20201119
  Receipt Date: 20201207
  Transmission Date: 20210114
  Serious: Yes (Hospitalization, Other)
  Sender: FDA-Public Use
  Company Number: FR-BAYER-2020-251167

PATIENT
  Age: 29 Year
  Sex: Female

DRUGS (2)
  1. MIRENA [Suspect]
     Active Substance: LEVONORGESTREL
     Dosage: 20 ?G PER DAY, CONTINUOUSLY
     Route: 015
     Dates: start: 20151026, end: 20201016
  2. XARELTO [Concomitant]
     Active Substance: RIVAROXABAN
     Indication: DEEP VEIN THROMBOSIS
     Dosage: 10 MG, QD

REACTIONS (5)
  - Device breakage [Recovered/Resolved]
  - Procedural haemorrhage [Recovered/Resolved]
  - Device difficult to use [None]
  - Complication of device removal [Recovered/Resolved]
  - Device defective [None]

NARRATIVE: CASE EVENT DATE: 20201015
